FAERS Safety Report 9821933 (Version 3)
Quarter: 2014Q1

REPORT INFORMATION
  Report Type: Report from Study
  Country: BR (occurrence: BR)
  Receive Date: 20140116
  Receipt Date: 20140217
  Transmission Date: 20141002
  Serious: Yes (Death, Other)
  Sender: FDA-Public Use
  Company Number: PHHY2014BR004325

PATIENT
  Sex: Male

DRUGS (2)
  1. EXJADE [Suspect]
     Indication: IRON OVERLOAD
     Dosage: UNK
     Route: 048
  2. EXJADE [Suspect]
     Dosage: UNK
     Route: 048
     Dates: start: 20130926

REACTIONS (5)
  - Death [Fatal]
  - Cartilage injury [Unknown]
  - Malaise [Unknown]
  - Asthenia [Unknown]
  - Blood disorder [Unknown]
